FAERS Safety Report 18376438 (Version 1)
Quarter: 2020Q4

REPORT INFORMATION
  Report Type: Spontaneous
  Country: US (occurrence: US)
  Receive Date: 20201012
  Receipt Date: 20201012
  Transmission Date: 20210114
  Serious: Yes (Disabling)
  Sender: FDA-Public Use
  Company Number: None

PATIENT
  Age: 63 Year
  Sex: Female
  Weight: 112.5 kg

DRUGS (6)
  1. C PAP MACHINE [Concomitant]
  2. VIT B 2, D AND C [Concomitant]
  3. METROPROPOLOL TARTRATE [Concomitant]
     Active Substance: METOPROLOL TARTRATE
  4. ELEQUIS [Concomitant]
  5. COPAXONE [Suspect]
     Active Substance: GLATIRAMER ACETATE
     Indication: MULTIPLE SCLEROSIS
     Dosage: ?          QUANTITY:1 INJECTION(S);OTHER FREQUENCY:3 X A WEEK  M W F;?
     Route: 030
  6. GABAPENTEN [Concomitant]
     Active Substance: GABAPENTIN

REACTIONS (15)
  - Malaise [None]
  - Adverse drug reaction [None]
  - Pain [None]
  - Heart rate increased [None]
  - Screaming [None]
  - Paraesthesia [None]
  - Hypoaesthesia [None]
  - Fall [None]
  - Ankle fracture [None]
  - Gastrooesophageal reflux disease [None]
  - Dyspnoea [None]
  - Chest discomfort [None]
  - Discomfort [None]
  - Lower limb fracture [None]
  - Hot flush [None]

NARRATIVE: CASE EVENT DATE: 20200902
